FAERS Safety Report 8966404 (Version 1)
Quarter: 2012Q4

REPORT INFORMATION
  Report Type: 
  Country: FR (occurrence: FR)
  Receive Date: 20121214
  Receipt Date: 20121214
  Transmission Date: 20130627
  Serious: Yes (Hospitalization)
  Sender: FDA-Public Use
  Company Number: FR-VIIV HEALTHCARE LIMITED-B0849342A

PATIENT
  Sex: Male

DRUGS (6)
  1. KIVEXA [Suspect]
     Indication: HIV TEST POSITIVE
     Route: 065
     Dates: start: 20121011
  2. BACTRIM FORTE [Suspect]
     Indication: INFECTION
     Route: 048
     Dates: start: 201211, end: 20121112
  3. LYRICA [Suspect]
     Indication: PRODUCT USED FOR UNKNOWN INDICATION
     Route: 065
     Dates: start: 20121003
  4. BARACLUDE [Suspect]
     Indication: HIV TEST POSITIVE
     Route: 065
     Dates: start: 20121025
  5. NORVIR [Concomitant]
     Indication: HIV TEST POSITIVE
     Route: 065
  6. PREZISTA [Concomitant]
     Indication: HIV TEST POSITIVE
     Route: 065

REACTIONS (2)
  - Dermatitis exfoliative [Recovered/Resolved]
  - Condition aggravated [Recovered/Resolved]
